FAERS Safety Report 5235169-2 (Version None)
Quarter: 2007Q1

REPORT INFORMATION
  Report Type: 
  Country: None (occurrence: None)
  Receive Date: 20070207
  Receipt Date: 20070124
  Transmission Date: 20070707
  Serious: Yes (Death)
  Sender: FDA-Public Use
  Company Number: US018929

PATIENT
  Age: 85 Year
  Sex: Male

DRUGS (11)
  1. TRISENOX [Suspect]
     Indication: ACUTE PROMYELOCYTIC LEUKAEMIA
     Dosage: 5 MG QD INTRAVENOUS DRIP
     Route: 041
     Dates: start: 20061013, end: 20061103
  2. GABEXATE MESILATE [Concomitant]
  3. DANAPAROID SODIUM [Concomitant]
  4. FUROSEMIDE [Concomitant]
  5. SPIRONOLACTONE [Concomitant]
  6. NICORANDIL [Concomitant]
  7. AMLODIPINE BESYLATE [Concomitant]
  8. FAMOTIDINE [Concomitant]
  9. ALLOPURINOL SODIUM [Concomitant]
  10. DIGOXIN [Concomitant]
  11. VALSARTAN [Concomitant]

REACTIONS (4)
  - CONCOMITANT DISEASE AGGRAVATED [None]
  - DISSEMINATED INTRAVASCULAR COAGULATION [None]
  - RESPIRATORY DISTRESS [None]
  - SEPSIS [None]
